FAERS Safety Report 5280797-1 (Version None)
Quarter: 2007Q1

REPORT INFORMATION
  Report Type: 
  Country: None (occurrence: None)
  Receive Date: 20070329
  Receipt Date: 20070315
  Transmission Date: 20070707
  Serious: Yes (Hospitalization)
  Sender: FDA-Public Use
  Company Number: GR-ELI_LILLY_AND_COMPANY-GR200703002550

PATIENT
  Age: 28 Year
  Sex: Male

DRUGS (3)
  1. DULOXETINE HYDROCHLORIDE [Suspect]
     Indication: DEPRESSION
     Dosage: 60 MG, DAILY (1/D)
     Route: 048
     Dates: start: 20070101, end: 20070201
  2. ZOLOFT [Concomitant]
     Indication: DEPRESSION
     Dosage: UNK, UNK
     Route: 048
  3. TRANXENE [Concomitant]
     Indication: DEPRESSION
     Dosage: UNK, UNK
     Route: 048

REACTIONS (1)
  - EPILEPSY [None]
